FAERS Safety Report 4492845-7 (Version None)
Quarter: 2004Q4

REPORT INFORMATION
  Report Type: 
  Country: None (occurrence: None)
  Receive Date: 20041102
  Receipt Date: 20041102
  Transmission Date: 20050328
  Serious: No
  Sender: FDA-Public Use
  Company Number: None

PATIENT
  Age: 28 Year
  Sex: Female

DRUGS (5)
  1. CLOZAPINE [Suspect]
     Dosage: 225 MG QAM ORAL, 375 MG QHS ORAL
     Route: 048
  2. BENZTROPINE MESYLATE [Concomitant]
  3. HALOPERIDOL [Concomitant]
  4. INH [Concomitant]
  5. B6 [Concomitant]

REACTIONS (1)
  - TACHYCARDIA [None]
